FAERS Safety Report 6349648-8 (Version None)
Quarter: 2009Q3

REPORT INFORMATION
  Report Type: 
  Country: None (occurrence: None)
  Receive Date: 20090911
  Receipt Date: 20090828
  Transmission Date: 20100115
  Serious: Yes (Other)
  Sender: FDA-Public Use
  Company Number: JP-ELI_LILLY_AND_COMPANY-JP200906004137

PATIENT
  Age: 60 Year
  Sex: Female

DRUGS (4)
  1. EVISTA [Suspect]
     Indication: OSTEOPOROSIS
     Dosage: 60 MG, DAILY (1/D)
     Route: 048
     Dates: start: 20061211, end: 20070326
  2. LORSTAR [Concomitant]
     Indication: HYPERLIPIDAEMIA
     Dosage: 2 D/F, DAILY (1/D)
     Route: 048
     Dates: start: 20020404
  3. NE SOFT [Concomitant]
     Indication: HYPERLIPIDAEMIA
     Dosage: 2 D/F, DAILY (1/D)
     Route: 048
     Dates: start: 20020404
  4. SAYMOTIN [Concomitant]
     Indication: PERIPHERAL CIRCULATORY FAILURE
     Dosage: 2 D/F, DAILY (1/D)
     Route: 048
     Dates: start: 20020425

REACTIONS (1)
  - PANCYTOPENIA [None]
